FAERS Safety Report 6442477-6 (Version None)
Quarter: 2009Q4

REPORT INFORMATION
  Report Type: 
  Country: None (occurrence: None)
  Receive Date: 20091117
  Receipt Date: 20091109
  Transmission Date: 20100525
  Serious: Yes (Hospitalization)
  Sender: FDA-Public Use
  Company Number: US-BIOGENIDEC-2008BI027500

PATIENT
  Age: 48 Year
  Sex: Female

DRUGS (10)
  1. TYSABRI [Suspect]
     Indication: MULTIPLE SCLEROSIS
     Route: 042
     Dates: start: 20070917
  2. BACLOFEN [Concomitant]
  3. CALCIUM WITH VITAMIN D [Concomitant]
  4. CYMBALTA [Concomitant]
  5. FOSAMAX [Concomitant]
  6. GLUCOSAMINE [Concomitant]
  7. IBUPROFEN [Concomitant]
  8. MIRALAX [Concomitant]
  9. MULTI-VITAMIN [Concomitant]
  10. PROVIGIL [Concomitant]

REACTIONS (7)
  - CORONARY ARTERY STENOSIS [None]
  - DIZZINESS [None]
  - HEPATIC ENZYME INCREASED [None]
  - INTERVERTEBRAL DISC DEGENERATION [None]
  - INTERVERTEBRAL DISC PROTRUSION [None]
  - MULTIPLE SCLEROSIS [None]
  - PAIN IN EXTREMITY [None]
